FAERS Safety Report 9256199 (Version 1)
Quarter: 2013Q2

REPORT INFORMATION
  Report Type: Spontaneous
  Country: US (occurrence: US)
  Receive Date: 20130425
  Receipt Date: 20130425
  Transmission Date: 20140414
  Serious: Yes (Other)
  Sender: FDA-Public Use
  Company Number: US-AMGEN-USASP2012038406

PATIENT
  Sex: Female

DRUGS (6)
  1. NEULASTA [Suspect]
     Indication: NEUTROPENIA
     Dosage: UNK
     Dates: start: 20120614
  2. RITUXIMAB [Concomitant]
     Indication: LYMPHOMA
  3. CYCLOPHOSPHAMIDE [Concomitant]
     Indication: LYMPHOMA
  4. DOXORUBICIN                        /00330902/ [Concomitant]
     Indication: LYMPHOMA
  5. VINCRISTINE [Concomitant]
     Indication: LYMPHOMA
  6. PREDNISOLONE [Concomitant]
     Indication: LYMPHOMA

REACTIONS (2)
  - Drug ineffective [Not Recovered/Not Resolved]
  - White blood cell count decreased [Not Recovered/Not Resolved]
